FAERS Safety Report 7433371-2 (Version None)
Quarter: 2011Q2

REPORT INFORMATION
  Report Type: 
  Country: None (occurrence: None)
  Receive Date: 20110422
  Receipt Date: 20110421
  Transmission Date: 20111010
  Serious: Yes (Death, Hospitalization)
  Sender: FDA-Public Use
  Company Number: JP-ABBOTT-07P-087-0420684-00

PATIENT
  Age: 80 Year
  Sex: Male

DRUGS (12)
  1. OXYCONTIN [Concomitant]
     Indication: CANCER PAIN
     Route: 048
     Dates: start: 20060719, end: 20060720
  2. OXYCONTIN [Concomitant]
     Route: 048
     Dates: start: 20060808, end: 20060903
  3. BUP-4 [Concomitant]
     Indication: POLLAKIURIA
     Route: 048
     Dates: start: 20060822, end: 20060901
  4. FERO-GRADUMET [Concomitant]
     Indication: ANAEMIA
     Route: 048
     Dates: start: 20060822, end: 20060925
  5. ALLELOCK [Concomitant]
     Indication: PRURITUS
     Route: 048
     Dates: start: 20060905, end: 20060911
  6. PURSENNID [Concomitant]
     Indication: CONSTIPATION
     Route: 048
     Dates: start: 20060808, end: 20060925
  7. CASODEX [Concomitant]
     Indication: PROSTATE CANCER STAGE IV
     Route: 048
     Dates: start: 20060713, end: 20060908
  8. LEUPLIN SR FOR INJECTION 11.25 MG [Suspect]
     Indication: PROSTATE CANCER STAGE IV
     Route: 058
     Dates: start: 20060713, end: 20060713
  9. DUROTEP [Concomitant]
     Indication: CANCER PAIN
     Route: 062
     Dates: start: 20060903, end: 20060908
  10. OXYCONTIN [Concomitant]
     Route: 048
     Dates: start: 20060721, end: 20060726
  11. OXYCONTIN [Concomitant]
     Route: 048
     Dates: start: 20060727, end: 20060803
  12. MAGNESIUM OXIDE [Concomitant]
     Indication: CONSTIPATION
     Route: 048
     Dates: start: 20060809, end: 20060925

REACTIONS (7)
  - DEMENTIA [None]
  - PROSTATE CANCER [None]
  - AGGRESSION [None]
  - RESTLESSNESS [None]
  - DELIRIUM [None]
  - CONSTIPATION [None]
  - SPEECH DISORDER [None]
